FAERS Safety Report 5068648-1 (Version None)
Quarter: 2006Q3

REPORT INFORMATION
  Report Type: 
  Country: None (occurrence: None)
  Receive Date: 20060802
  Receipt Date: 20060124
  Transmission Date: 20061208
  Serious: No
  Sender: FDA-Public Use
  Company Number: US-BRISTOL-MYERS SQUIBB COMPANY-13259353

PATIENT
  Age: 27 Year
  Sex: Female

DRUGS (5)
  1. COUMADIN [Suspect]
     Indication: DEEP VEIN THROMBOSIS
     Dates: start: 20051101
  2. LOVENOX [Concomitant]
     Indication: DEEP VEIN THROMBOSIS
     Route: 051
     Dates: start: 20051101, end: 20051101
  3. ACETAMINOPHEN [Concomitant]
     Indication: PAIN
  4. OXYCODONE HCL [Concomitant]
     Indication: PAIN
  5. NORETHINDRONE+ETHINYL EST [Concomitant]
     Indication: CONTRACEPTION
     Route: 048
     Dates: start: 20020101, end: 20051121

REACTIONS (2)
  - INTERNATIONAL NORMALISED RATIO INCREASED [None]
  - PAIN IN EXTREMITY [None]
